FAERS Safety Report 25762247 (Version 2)
Quarter: 2025Q3

REPORT INFORMATION
  Report Type: Spontaneous
  Country: US (occurrence: US)
  Receive Date: 20250904
  Receipt Date: 20250905
  Transmission Date: 20251020
  Serious: Yes (Death, Life-Threatening, Hospitalization, Other)
  Sender: PFIZER
  Company Number: US-PFIZER INC-202500175357

PATIENT
  Age: 76 Year
  Sex: Male

DRUGS (1)
  1. VYNDAMAX [Suspect]
     Active Substance: TAFAMIDIS
     Indication: Cardiac amyloidosis
     Dates: start: 202411, end: 202508

REACTIONS (3)
  - Pneumonia [Fatal]
  - COVID-19 [Fatal]
  - Dysphagia [Unknown]

NARRATIVE: CASE EVENT DATE: 20250701
